FAERS Safety Report 6758929-5 (Version None)
Quarter: 2010Q2

REPORT INFORMATION
  Report Type: 
  Country: None (occurrence: None)
  Receive Date: 20100603
  Receipt Date: 20100519
  Transmission Date: 20101027
  Serious: Yes (Hospitalization, Other)
  Sender: FDA-Public Use
  Company Number: AUR-APL-2010-01362

PATIENT
  Age: 14 Year
  Sex: Male

DRUGS (16)
  1. SULFAMETHOXAZOLE AND TRIMETHOPRIM [Suspect]
     Indication: POSTOPERATIVE WOUND INFECTION
     Dosage: 3 DOSES,
  2. VANCOMYCIN [Suspect]
     Indication: POSTOPERATIVE WOUND INFECTION
  3. PERCOCET [Concomitant]
  4. OXYCODONE [Concomitant]
  5. MULTI-VITAMIN [Concomitant]
  6. VITAMIN C [Concomitant]
  7. ZINC SULFATE [Concomitant]
  8. SENNA [Concomitant]
  9. PANTOPRAZOLE [Concomitant]
  10. BISACODYL [Concomitant]
  11. METOCLOPRAMIDE [Concomitant]
  12. ONDANSETRON [Concomitant]
  13. POLYETHYLENE GLYCOL [Concomitant]
  14. ACETAMINOPHEN [Concomitant]
  15. FERROUS SULFATE TAB [Concomitant]
  16. DIPHENHYDRAMINE HYDROCHLORIDE [Concomitant]

REACTIONS (15)
  - ABDOMINAL PAIN [None]
  - DRUG HYPERSENSITIVITY [None]
  - DRUG RASH WITH EOSINOPHILIA AND SYSTEMIC SYMPTOMS [None]
  - FAECAL VOLUME INCREASED [None]
  - HEADACHE [None]
  - HYPOTENSION [None]
  - LACTIC ACIDOSIS [None]
  - LEUKOPENIA [None]
  - LYMPHADENOPATHY [None]
  - MOUTH ULCERATION [None]
  - NEUTROPENIA [None]
  - PERICARDIAL EFFUSION [None]
  - SEPSIS [None]
  - TOXIC SHOCK SYNDROME [None]
  - VOMITING [None]
